FAERS Safety Report 14785689 (Version 1)
Quarter: 2018Q2

REPORT INFORMATION
  Report Type: Spontaneous
  Country: ES (occurrence: ES)
  Receive Date: 20180420
  Receipt Date: 20180420
  Transmission Date: 20180711
  Serious: Yes (Other)
  Sender: FDA-Public Use
  Company Number: ES-IMPAX LABORATORIES, INC-2018-IPXL-01182

PATIENT
  Age: 47 Year
  Sex: Male
  Weight: 87 kg

DRUGS (9)
  1. BUPIVACAINE. [Suspect]
     Active Substance: BUPIVACAINE
     Indication: LOCAL ANAESTHESIA
     Dosage: 0.25 % (TOTAL DOSE OF 40 ML), UNK
     Route: 065
  2. PROPOFOL. [Suspect]
     Active Substance: PROPOFOL
     Indication: LOCAL ANAESTHESIA
     Dosage: 1 MG/KG, EVERY HOUR
     Route: 041
  3. LEVETIRACETAM. [Suspect]
     Active Substance: LEVETIRACETAM
     Indication: GENERALISED TONIC-CLONIC SEIZURE
     Dosage: 1500 MG, EVERY 12HR
     Route: 065
  4. CLOBAZAM [Suspect]
     Active Substance: CLOBAZAM
     Indication: GENERALISED TONIC-CLONIC SEIZURE
     Dosage: 10 MG, EVERY 12HR
     Route: 065
  5. PROPOFOL. [Suspect]
     Active Substance: PROPOFOL
     Indication: SEDATION
     Dosage: 60 MG, UNK
     Route: 065
  6. CISATRACURIUM. [Suspect]
     Active Substance: CISATRACURIUM
     Indication: LOCAL ANAESTHESIA
     Dosage: 10 MG, UNK
     Route: 065
  7. REMIFENTANIL [Suspect]
     Active Substance: REMIFENTANIL
     Indication: SEDATION
  8. DIVALPROEX SODIUM ER [Suspect]
     Active Substance: DIVALPROEX SODIUM
     Indication: GENERALISED TONIC-CLONIC SEIZURE
     Dosage: 1000 MG, 500 MG, 500 MG (THREE TIMES A DAY)
     Route: 065
  9. REMIFENTANIL [Suspect]
     Active Substance: REMIFENTANIL
     Indication: LOCAL ANAESTHESIA
     Dosage: 0.025 G/KG/MIN
     Route: 041

REACTIONS (2)
  - Astrocytoma malignant [Recovering/Resolving]
  - Hyperammonaemic encephalopathy [Recovering/Resolving]
